FAERS Safety Report 21733401 (Version 3)
Quarter: 2024Q3

REPORT INFORMATION
  Report Type: Spontaneous
  Country: ES (occurrence: ES)
  Receive Date: 20221215
  Receipt Date: 20240802
  Transmission Date: 20241016
  Serious: Yes (Death, Hospitalization, Other)
  Sender: MYLAN
  Company Number: ES-INCYTE CORPORATION-2022IN009915

PATIENT
  Age: 75 Year
  Sex: Male

DRUGS (3)
  1. LENALIDOMIDE [Suspect]
     Active Substance: LENALIDOMIDE
     Indication: Lymphoma
     Dosage: UNK
     Route: 065
  2. TAFASITAMAB [Suspect]
     Active Substance: TAFASITAMAB
     Indication: Lymphoma
     Dosage: 840MG DAYS 1,4,8,15,22 OF CYCLE 1 DAYS 1,8,15
     Route: 042
     Dates: start: 20220629
  3. TAFASITAMAB [Suspect]
     Active Substance: TAFASITAMAB
     Indication: Diffuse large B-cell lymphoma recurrent
     Dosage: 840MG DAYS 1,4,8,15,22 OF CYCLE 1 DAYS 1,8,15
     Route: 042
     Dates: start: 20220812

REACTIONS (7)
  - Death [Fatal]
  - Disease progression [Fatal]
  - Lymphoma [Fatal]
  - Diffuse large B-cell lymphoma [Fatal]
  - Pyrexia [Unknown]
  - Ill-defined disorder [Unknown]
  - Off label use [Unknown]
